FAERS Safety Report 9735110 (Version 3)
Quarter: 2014Q1

REPORT INFORMATION
  Report Type: Spontaneous
  Country: US (occurrence: None)
  Receive Date: 20131204
  Receipt Date: 20140227
  Transmission Date: 20141002
  Serious: Yes (Death, Hospitalization)
  Sender: FDA-Public Use
  Company Number: UTC-041229

PATIENT
  Age: 44 Year
  Sex: Female
  Weight: 91.36 kg

DRUGS (2)
  1. TYVASO [Suspect]
     Indication: COR PULMONALE CHRONIC
     Dosage: 18-54 MCG (4 IN 1 D)
     Route: 055
     Dates: start: 20121103
  2. ADCIRCA (TADALAFIL) [Concomitant]

REACTIONS (5)
  - Death [None]
  - Abdominal pain [None]
  - Cardiogenic shock [None]
  - Pericardial effusion [None]
  - Sepsis [None]
